FAERS Safety Report 23416435 (Version 1)
Quarter: 2024Q1

REPORT INFORMATION
  Report Type: Spontaneous
  Country: US (occurrence: None)
  Receive Date: 20240117
  Receipt Date: 20240117
  Transmission Date: 20240409
  Serious: Yes (Other)
  Sender: FDA-Public Use
  Company Number: None

PATIENT
  Sex: Female

DRUGS (21)
  1. NUCALA [Suspect]
     Active Substance: MEPOLIZUMAB
     Indication: Cystitis
     Dosage: OTHER FREQUENCY : Q 4WKS;?
     Route: 058
     Dates: start: 20230504
  2. CIPROFLOXACIN [Concomitant]
     Active Substance: CIPROFLOXACIN
  3. CYMBALTA [Concomitant]
     Active Substance: DULOXETINE HYDROCHLORIDE
  4. DESVENLAFAX [Concomitant]
  5. DIAZEPAM TAB [Concomitant]
  6. DOCQLACE [Concomitant]
     Active Substance: DOCUSATE SODIUM
  7. ESTRADIOL [Concomitant]
     Active Substance: ESTRADIOL
  8. FLUCONAZOLE TAB [Concomitant]
  9. FLUDROCORT TAB [Concomitant]
  10. HYDROMORPHON TAB [Concomitant]
  11. HYDROXYZINE PAMOATE [Concomitant]
     Active Substance: HYDROXYZINE PAMOATE
  12. IBUPROFEN TAB [Concomitant]
  13. LEVAQUIN TAB [Concomitant]
  14. LIDOCAINE HYDROCHLORIDE [Concomitant]
     Active Substance: LIDOCAINE HYDROCHLORIDE
  15. LUPRON DEPOT [Concomitant]
     Active Substance: LEUPROLIDE ACETATE
  16. METHOTREXATE [Concomitant]
     Active Substance: METHOTREXATE
  17. MORPHINE SUL TAB [Concomitant]
  18. NORETHIN ACE TAB [Concomitant]
  19. ONDANSETRON SOL [Concomitant]
  20. ONDANSETRON TAB [Concomitant]
  21. TRAMADOL HCL TAB [Concomitant]

REACTIONS (2)
  - Asthma [None]
  - Quality of life decreased [None]
